FAERS Safety Report 15267041 (Version 1)
Quarter: 2018Q3

REPORT INFORMATION
  Report Type: Report from Study
  Country: BE (occurrence: BE)
  Receive Date: 20180810
  Receipt Date: 20180810
  Transmission Date: 20181019
  Serious: Yes (Hospitalization, Other)
  Sender: FDA-Public Use
  Company Number: BE-TEVA-2018-BE-938013

PATIENT
  Age: 73 Year
  Sex: Female
  Weight: 75 kg

DRUGS (59)
  1. PIPERACILLIN/TAZOBACTAM [Concomitant]
     Active Substance: PIPERACILLIN SODIUM\TAZOBACTAM SODIUM
     Indication: DIARRHOEA
     Route: 065
     Dates: start: 20160717, end: 20160721
  2. ASAFLOW [Concomitant]
     Active Substance: ASPIRIN
     Route: 065
     Dates: start: 2011
  3. MORPHINE [Concomitant]
     Active Substance: MORPHINE
     Route: 065
     Dates: start: 20161001, end: 20161001
  4. DEXAMETHASONE. [Concomitant]
     Active Substance: DEXAMETHASONE
     Indication: NAUSEA
     Route: 065
     Dates: start: 20160709, end: 20160710
  5. ZOFRAN [Concomitant]
     Active Substance: ONDANSETRON HYDROCHLORIDE
     Indication: NAUSEA
     Route: 065
     Dates: start: 20160701, end: 20160704
  6. POTASSIUM CHLORIDE. [Concomitant]
     Active Substance: POTASSIUM CHLORIDE
     Indication: HYPOKALAEMIA
     Route: 065
     Dates: start: 20160719, end: 20160721
  7. TAVANIC [Concomitant]
     Active Substance: LEVOFLOXACIN
     Indication: DIARRHOEA
     Route: 065
     Dates: start: 20160721, end: 20160723
  8. PANTOMED (BELGIUM) [Concomitant]
     Indication: NAUSEA
     Route: 065
     Dates: start: 20160709
  9. CARBOPLATIN. [Suspect]
     Active Substance: CARBOPLATIN
     Dosage: 2,7 AUC
     Route: 042
     Dates: start: 20160623
  10. CARBOPLATIN. [Suspect]
     Active Substance: CARBOPLATIN
     Dosage: 2,7 AUC; LAST DOSE :12/JUL/2016
     Route: 042
     Dates: start: 20160705
  11. AVASTIN [Suspect]
     Active Substance: BEVACIZUMAB
     Route: 042
     Dates: start: 20160725
  12. LORMETAZEPAM [Concomitant]
     Active Substance: LORMETAZEPAM
     Route: 065
     Dates: start: 20160720, end: 20160720
  13. AACIDEXAM [Concomitant]
     Active Substance: DEXAMETHASONE
     Indication: NAUSEA
     Route: 065
     Dates: start: 20161001, end: 20161001
  14. AACIDEXAM [Concomitant]
     Active Substance: DEXAMETHASONE
     Route: 065
     Dates: start: 20160720, end: 20160722
  15. TEMESTA (BELGIUM) [Concomitant]
     Indication: ANXIETY
     Route: 065
     Dates: start: 20160704, end: 20160704
  16. ULTRA?K (BELGIUM) [Concomitant]
     Indication: HYPOKALAEMIA
     Route: 065
     Dates: start: 20160704, end: 20160707
  17. POTASSIUM CHLORIDE. [Concomitant]
     Active Substance: POTASSIUM CHLORIDE
     Route: 065
     Dates: start: 20160930, end: 20160930
  18. DAFALGAN [Concomitant]
     Active Substance: ACETAMINOPHEN
     Route: 065
     Dates: start: 2016
  19. MOVIPREP [Concomitant]
     Active Substance: ASCORBIC ACID\POLYETHYLENE GLYCOL 3350\POTASSIUM CHLORIDE\SODIUM ASCORBATE\SODIUM CHLORIDE\SODIUM SULFATE
     Route: 065
     Dates: start: 20160929, end: 20160929
  20. CEFAZOLINE [Concomitant]
     Active Substance: CEFAZOLIN SODIUM
     Route: 065
     Dates: start: 20160930, end: 20160930
  21. PARACETAMOL [Concomitant]
     Active Substance: ACETAMINOPHEN
     Route: 065
     Dates: start: 20170315
  22. RAMIPRIL. [Concomitant]
     Active Substance: RAMIPRIL
     Indication: HYPERTENSION
     Route: 065
     Dates: start: 20170519
  23. CARBOPLATIN. [Suspect]
     Active Substance: CARBOPLATIN
     Indication: OVARIAN CANCER
     Dosage: 2 AUC
     Route: 042
     Dates: start: 20160726
  24. INNOHEP [Concomitant]
     Active Substance: TINZAPARIN SODIUM
     Route: 065
     Dates: start: 20160726, end: 20160928
  25. DAKTARIN [Concomitant]
     Active Substance: MICONAZOLE NITRATE
     Indication: RASH
     Route: 065
     Dates: start: 20160721, end: 20160721
  26. ONDANSETRON BRAUN [Concomitant]
     Route: 065
     Dates: start: 20160930, end: 20161002
  27. PACKED CELLS [Concomitant]
     Active Substance: CELLS, NOS
     Indication: ANAEMIA
     Route: 065
     Dates: start: 20160718, end: 20160718
  28. AVASTIN [Suspect]
     Active Substance: BEVACIZUMAB
     Indication: OVARIAN CANCER
     Route: 042
     Dates: start: 20160609
  29. AACIDEXAM [Concomitant]
     Active Substance: DEXAMETHASONE
     Indication: NAUSEA
     Route: 065
     Dates: start: 20160701, end: 20160704
  30. OPIUM. [Concomitant]
     Active Substance: OPIUM
     Indication: DIARRHOEA
     Route: 065
     Dates: start: 20160720, end: 20160723
  31. ZYPREXA [Concomitant]
     Active Substance: OLANZAPINE
     Indication: NAUSEA
     Route: 065
  32. ZOLPIDEM [Concomitant]
     Active Substance: ZOLPIDEM\ZOLPIDEM TARTRATE
     Route: 065
     Dates: start: 2014
  33. REMERGON [Concomitant]
     Active Substance: MIRTAZAPINE
     Indication: NAUSEA
     Route: 065
     Dates: start: 20170602
  34. CARBOPLATIN. [Suspect]
     Active Substance: CARBOPLATIN
     Dosage: 2,7 AUC
     Route: 042
     Dates: start: 20160609
  35. PACLITAXEL. [Suspect]
     Active Substance: PACLITAXEL
     Indication: OVARIAN CANCER
     Dosage: LAST DOSE :12/JUL/2016
     Route: 042
     Dates: start: 20160705
  36. PACLITAXEL. [Suspect]
     Active Substance: PACLITAXEL
     Indication: OVARIAN CANCER
     Route: 042
     Dates: start: 20160609
  37. PACLITAXEL. [Suspect]
     Active Substance: PACLITAXEL
     Route: 042
     Dates: start: 20160726
  38. FLAGYL [Concomitant]
     Active Substance: METRONIDAZOLE\METRONIDAZOLE HYDROCHLORIDE
     Route: 065
     Dates: start: 20160930, end: 20160930
  39. IMODIUM [Concomitant]
     Active Substance: LOPERAMIDE HYDROCHLORIDE
     Route: 065
     Dates: start: 20160712, end: 20161110
  40. NEUPOGEN [Concomitant]
     Active Substance: FILGRASTIM
     Indication: NEUTROPENIA
     Route: 065
     Dates: start: 20160717, end: 20160721
  41. PLASMALYTE A [Concomitant]
     Route: 065
     Dates: start: 20160929, end: 20160930
  42. VASEXTEN [Concomitant]
     Active Substance: BARNIDIPINE HYDROCHLORIDE
     Indication: HYPERTENSION
     Route: 065
     Dates: start: 201705
  43. AVASTIN [Suspect]
     Active Substance: BEVACIZUMAB
     Route: 042
     Dates: start: 20160705
  44. INNOHEP [Concomitant]
     Active Substance: TINZAPARIN SODIUM
     Route: 065
     Dates: start: 20160929, end: 20161230
  45. INNOHEP [Concomitant]
     Active Substance: TINZAPARIN SODIUM
     Route: 065
     Dates: start: 20160608, end: 20160626
  46. IMODIUM [Concomitant]
     Active Substance: LOPERAMIDE HYDROCHLORIDE
     Indication: DIARRHOEA
     Route: 065
     Dates: start: 20160701, end: 20160701
  47. POTASSIUM CHLORIDE. [Concomitant]
     Active Substance: POTASSIUM CHLORIDE
     Route: 065
     Dates: start: 20160717, end: 20160717
  48. BISOPROLOL [Concomitant]
     Active Substance: BISOPROLOL
     Route: 065
     Dates: start: 2011
  49. PARACETAMOL FRESENIUS [Concomitant]
     Indication: DIARRHOEA
     Route: 065
     Dates: start: 20160718, end: 20160718
  50. CONTRAMAL [Concomitant]
     Active Substance: TRAMADOL HYDROCHLORIDE
     Indication: ABDOMINAL PAIN
     Route: 065
     Dates: start: 20170602
  51. ONDANSETRON [Concomitant]
     Active Substance: ONDANSETRON
     Indication: NAUSEA
     Route: 065
     Dates: start: 20160724, end: 20160816
  52. BURINEX [Concomitant]
     Active Substance: BUMETANIDE
     Indication: OEDEMA PERIPHERAL
     Route: 065
     Dates: start: 20170609
  53. XANAX [Concomitant]
     Active Substance: ALPRAZOLAM
     Indication: NAUSEA
     Route: 065
     Dates: start: 20160708
  54. PACLITAXEL. [Suspect]
     Active Substance: PACLITAXEL
     Route: 042
     Dates: start: 20160623
  55. INNOHEP [Concomitant]
     Active Substance: TINZAPARIN SODIUM
     Route: 065
     Dates: start: 20160629, end: 20160716
  56. ZOFRAN [Concomitant]
     Active Substance: ONDANSETRON HYDROCHLORIDE
     Route: 065
     Dates: start: 20160712, end: 20160723
  57. CORDARONE [Concomitant]
     Active Substance: AMIODARONE HYDROCHLORIDE
     Route: 065
     Dates: start: 2013
  58. TOTALIP [Concomitant]
     Active Substance: ATORVASTATIN
     Route: 065
     Dates: start: 2004
  59. ZYPREXA [Concomitant]
     Active Substance: OLANZAPINE
     Indication: ANXIETY
     Route: 065
     Dates: start: 20161106

REACTIONS (38)
  - Diarrhoea [Recovered/Resolved]
  - Depressed mood [Not Recovered/Not Resolved]
  - Anaemia [Recovered/Resolved]
  - Abdominal pain [Not Recovered/Not Resolved]
  - Hypokalaemia [Recovered/Resolved]
  - Proteinuria [Not Recovered/Not Resolved]
  - Asthenia [Recovered/Resolved]
  - Abdominal pain [Not Recovered/Not Resolved]
  - Dyspepsia [Recovered/Resolved]
  - Hypokalaemia [Recovered/Resolved]
  - Epistaxis [Recovered/Resolved]
  - Weight decreased [Recovered/Resolved]
  - Dry mouth [Recovered/Resolved]
  - Stomatitis [Recovered/Resolved]
  - Dehydration [Recovered/Resolved]
  - Abdominal pain upper [Recovered/Resolved]
  - Diarrhoea haemorrhagic [Recovered/Resolved]
  - Dizziness [Recovered/Resolved]
  - Nausea [Not Recovered/Not Resolved]
  - Dry skin [Recovered/Resolved]
  - Anxiety [Not Recovered/Not Resolved]
  - Nausea [Not Recovered/Not Resolved]
  - Rash pruritic [Recovered/Resolved]
  - Neutropenia [Recovered/Resolved]
  - Faecaloma [Recovered/Resolved]
  - Fatigue [Not Recovered/Not Resolved]
  - Urosepsis [Recovered/Resolved]
  - Electrocardiogram QT prolonged [Not Recovered/Not Resolved]
  - Hypertension [Not Recovered/Not Resolved]
  - Decreased appetite [Recovered/Resolved]
  - Febrile neutropenia [Recovered/Resolved]
  - Constipation [Not Recovered/Not Resolved]
  - Peripheral sensory neuropathy [Not Recovered/Not Resolved]
  - Decreased appetite [Not Recovered/Not Resolved]
  - Somnolence [Not Recovered/Not Resolved]
  - Thrombocytopenia [Recovered/Resolved]
  - Epistaxis [Recovered/Resolved]
  - Oedema peripheral [Not Recovered/Not Resolved]

NARRATIVE: CASE EVENT DATE: 20160616
